FAERS Safety Report 8150672-3 (Version None)
Quarter: 2012Q1

REPORT INFORMATION
  Report Type: 
  Country: None (occurrence: None)
  Receive Date: 20120220
  Receipt Date: 20120215
  Transmission Date: 20120608
  Serious: Yes (Death)
  Sender: FDA-Public Use
  Company Number: PHHY2012CA013659

PATIENT
  Sex: Male

DRUGS (3)
  1. AFINITOR [Suspect]
     Indication: GASTRINOMA
     Dosage: 10 MG DAILY
     Route: 048
     Dates: start: 20110704, end: 20110801
  2. AFINITOR [Suspect]
     Dosage: 5 MG DAILY
     Route: 048
     Dates: start: 20110801, end: 20120117
  3. SANDOSTATIN LAR [Suspect]
     Indication: GASTRINOMA
     Dosage: 20 MG, QMO
     Route: 030
     Dates: start: 20081222, end: 20120117

REACTIONS (1)
  - DEATH [None]
